FAERS Safety Report 13055680 (Version 1)
Quarter: 2016Q4

REPORT INFORMATION
  Report Type: Spontaneous
  Country: US (occurrence: US)
  Receive Date: 20161222
  Receipt Date: 20161222
  Transmission Date: 20170207
  Serious: No
  Sender: FDA-Public Use
  Company Number: US-MYLANLABS-2015M1045247

PATIENT
  Age: 76 Year
  Sex: Female

DRUGS (7)
  1. DILTIAZEM HYDROCHLORIDE TABLETS, USP [Suspect]
     Active Substance: DILTIAZEM HYDROCHLORIDE
     Indication: BLOOD PRESSURE MEASUREMENT
     Dosage: 120 MG, AM
     Route: 048
     Dates: start: 201502
  2. OMEGA 3 6 9 COMPLEX [Concomitant]
     Dosage: UNK
  3. BENICAR [Concomitant]
     Active Substance: OLMESARTAN MEDOXOMIL
     Dosage: UNK
  4. UBIQUINOL [Concomitant]
     Active Substance: UBIQUINOL
     Dosage: UNK
  5. VITAMIN D                          /00107901/ [Concomitant]
     Active Substance: ERGOCALCIFEROL
     Dosage: UNK
  6. ALPRAZOLAM. [Concomitant]
     Active Substance: ALPRAZOLAM
     Dosage: UNK
  7. DILTIAZEM HYDROCHLORIDE TABLETS, USP [Suspect]
     Active Substance: DILTIAZEM HYDROCHLORIDE
     Dosage: 60 MG, HS
     Route: 048
     Dates: start: 201502

REACTIONS (3)
  - Glucose tolerance impaired [Not Recovered/Not Resolved]
  - Glycosylated haemoglobin increased [Not Recovered/Not Resolved]
  - Hyperglycaemia [Not Recovered/Not Resolved]

NARRATIVE: CASE EVENT DATE: 201508
